FAERS Safety Report 15576162 (Version 1)
Quarter: 2018Q4

REPORT INFORMATION
  Report Type: Spontaneous
  Country: FR (occurrence: FR)
  Receive Date: 20181101
  Receipt Date: 20181101
  Transmission Date: 20190205
  Serious: Yes (Other)
  Sender: FDA-Public Use
  Company Number: FR-MYLANLABS-2018M1081871

PATIENT
  Age: 46 Year
  Sex: Male
  Weight: 75 kg

DRUGS (2)
  1. VORICONAZOLE MYLAN [Suspect]
     Active Substance: VORICONAZOLE
     Indication: ASPERGILLUS INFECTION
     Dosage: 600 MG, QD
     Route: 042
     Dates: start: 20180503, end: 20180511
  2. VANCOMYCINE                        /00314401/ [Concomitant]
     Active Substance: VANCOMYCIN
     Indication: PRODUCT USED FOR UNKNOWN INDICATION
     Dosage: UNK

REACTIONS (1)
  - Renal tubular disorder [Recovered/Resolved]

NARRATIVE: CASE EVENT DATE: 201805
